FAERS Safety Report 5386372-2 (Version None)
Quarter: 2007Q3

REPORT INFORMATION
  Report Type: 
  Country: None (occurrence: None)
  Receive Date: 20070710
  Receipt Date: 20070710
  Transmission Date: 20080115
  Serious: Yes (Hospitalization)
  Sender: FDA-Public Use
  Company Number: None

PATIENT
  Age: 75 Year
  Sex: Male

DRUGS (2)
  1. DIPYRIDAMOLE [Suspect]
     Indication: CARDIOVASCULAR DISORDER
     Dates: start: 20070706, end: 20070706
  2. DIPYRIDAMOLE [Suspect]
     Indication: SURGERY
     Dates: start: 20070706, end: 20070706

REACTIONS (5)
  - ANGINA PECTORIS [None]
  - DYSPNOEA [None]
  - HEADACHE [None]
  - PALPITATIONS [None]
  - PROCEDURAL COMPLICATION [None]
